FAERS Safety Report 4719658-2 (Version None)
Quarter: 2005Q3

REPORT INFORMATION
  Report Type: 
  Country: None (occurrence: None)
  Receive Date: 20050721
  Receipt Date: 20040607
  Transmission Date: 20060218
  Serious: No
  Sender: FDA-Public Use
  Company Number: US-GLAXOSMITHKLINE-A0513638A

PATIENT
  Age: 77 Year
  Sex: Female

DRUGS (11)
  1. AVANDIA [Suspect]
     Dosage: 4MG PER DAY
     Route: 048
  2. METFORMIN [Concomitant]
  3. COUMADIN [Concomitant]
  4. ISOSORBIDE [Concomitant]
  5. INDAPAMIDE [Concomitant]
  6. DIGOXIN [Concomitant]
  7. RANITIDINE [Concomitant]
  8. ADALAT CC [Concomitant]
  9. ZESTRIL [Concomitant]
  10. CLONIDINE [Concomitant]
  11. PRAVACHOL [Concomitant]

REACTIONS (1)
  - CHEST PAIN [None]
